FAERS Safety Report 24236071 (Version 2)
Quarter: 2024Q3

REPORT INFORMATION
  Report Type: Spontaneous
  Country: MX (occurrence: MX)
  Receive Date: 20240822
  Receipt Date: 20240916
  Transmission Date: 20241016
  Serious: Yes (Disabling)
  Sender: ROCHE
  Company Number: MX-ROCHE-10000060580

PATIENT
  Age: 43 Year
  Sex: Female
  Weight: 70 kg

DRUGS (5)
  1. RITUXIMAB [Suspect]
     Active Substance: RITUXIMAB
     Indication: Neuromyelitis optica spectrum disorder
     Dosage: DOSE WAS NOT REPORTED. FREQUENCY: SINGLE DOSE
     Route: 042
     Dates: start: 202402, end: 202402
  2. TOCILIZUMAB [Suspect]
     Active Substance: TOCILIZUMAB
     Indication: Neuromyelitis optica spectrum disorder
     Route: 058
  3. PREGABALIN [Concomitant]
     Active Substance: PREGABALIN
     Dosage: DOSE AND FREQUENCY WERE NOT REPORTED
  4. CARBAMAZEPINE [Concomitant]
     Active Substance: CARBAMAZEPINE
     Dosage: DOSE AND FREQUENCY WERE NOT REPORTED
  5. PREDNISONE [Concomitant]
     Active Substance: PREDNISONE
     Dosage: DOSE AND FREQUENCY WERE NOT REPORTED

REACTIONS (5)
  - Disease recurrence [Not Recovered/Not Resolved]
  - Off label use [Unknown]
  - Off label use [Unknown]
  - Nausea [Recovered/Resolved]
  - Headache [Recovered/Resolved]

NARRATIVE: CASE EVENT DATE: 20240201
